FAERS Safety Report 4647287-8 (Version None)
Quarter: 2005Q2

REPORT INFORMATION
  Report Type: 
  Country: None (occurrence: None)
  Receive Date: 20050425
  Receipt Date: 20050425
  Transmission Date: 20051028
  Serious: Yes (Life-Threatening)
  Sender: FDA-Public Use
  Company Number: None

PATIENT
  Age: 86 Year
  Sex: Male

DRUGS (8)
  1. VANCOMYCIN [Suspect]
     Indication: PNEUMONIA STAPHYLOCOCCAL
     Dosage: 1 GM Q24H INTRAVENOU
     Route: 042
     Dates: start: 20050413, end: 20050418
  2. ASPIRIN [Concomitant]
  3. HYDRALAZINE [Concomitant]
  4. INSULIN GLIARGINE [Concomitant]
  5. FUROSEMIDE [Concomitant]
  6. LANSOPRAZOLE [Concomitant]
  7. LEVOFLOXACIN [Concomitant]
  8. CEFTAZIDIME [Concomitant]

REACTIONS (2)
  - DRUG ADMINISTRATION ERROR [None]
  - RENAL FAILURE ACUTE [None]
